FAERS Safety Report 5382895-0 (Version None)
Quarter: 2007Q3

REPORT INFORMATION
  Report Type: 
  Country: None (occurrence: None)
  Receive Date: 20070705
  Receipt Date: 20070626
  Transmission Date: 20080115
  Serious: Yes (Other)
  Sender: FDA-Public Use
  Company Number: TPA2007A01385

PATIENT
  Age: 74 Year
  Sex: Female
  Weight: 95.709 kg

DRUGS (4)
  1. ACTOS [Suspect]
     Indication: TYPE 2 DIABETES MELLITUS
     Dosage: 30 MG, 1 IN 1 D, PER ORAL
     Route: 048
     Dates: start: 20010101, end: 20070612
  2. GLUCOVANCE [Concomitant]
  3. COUMADIN [Concomitant]
  4. TOPROL-XL [Concomitant]

REACTIONS (2)
  - PULMONARY HYPERTENSION [None]
  - VARICOSE VEIN OPERATION [None]
